FAERS Safety Report 7266369-8 (Version None)
Quarter: 2011Q1

REPORT INFORMATION
  Report Type: 
  Country: None (occurrence: None)
  Receive Date: 20110131
  Receipt Date: 20110125
  Transmission Date: 20110831
  Serious: Yes (Hospitalization)
  Sender: FDA-Public Use
  Company Number: GB-TEVA-252786ISR

PATIENT
  Age: 75 Year
  Sex: Male

DRUGS (1)
  1. LISINOPRIL [Suspect]
     Route: 048

REACTIONS (6)
  - LOCAL SWELLING [None]
  - SPEECH DISORDER [None]
  - DYSPHAGIA [None]
  - PALATAL DISORDER [None]
  - EYE SWELLING [None]
  - LIP SWELLING [None]
